FAERS Safety Report 4981783-9 (Version None)
Quarter: 2006Q2

REPORT INFORMATION
  Report Type: 
  Country: None (occurrence: None)
  Receive Date: 20060425
  Receipt Date: 20060417
  Transmission Date: 20061013
  Serious: Yes (Other)
  Sender: FDA-Public Use
  Company Number: US-GLAXOSMITHKLINE-A0601964A

PATIENT
  Sex: Female

DRUGS (8)
  1. ADVAIR DISKUS 100/50 [Suspect]
     Indication: ASTHMA
     Dosage: 1PUFF TWICE PER DAY
     Route: 055
     Dates: start: 20050101
  2. ATENOLOL [Concomitant]
  3. BENICAR [Concomitant]
  4. LEVOXYL [Concomitant]
  5. FOLGARD [Concomitant]
  6. CALCIUM GLUCONATE [Concomitant]
  7. UNSPECIFIED MEDICATION [Concomitant]
  8. CHOLESTEROL REDUCING AGENT NAME NOT KNOWN [Concomitant]

REACTIONS (6)
  - APHONIA [None]
  - CATARACT [None]
  - DRUG ADMINISTRATION ERROR [None]
  - DYSPHONIA [None]
  - LARYNGITIS [None]
  - VISUAL DISTURBANCE [None]
